FAERS Safety Report 23242495 (Version 1)
Quarter: 2023Q4

REPORT INFORMATION
  Report Type: Spontaneous
  Country: RS (occurrence: RS)
  Receive Date: 20231129
  Receipt Date: 20231129
  Transmission Date: 20240109
  Serious: Yes (Life-Threatening, Hospitalization, Other)
  Sender: FDA-Public Use
  Company Number: RS-002147023-NVSC2023RS251285

PATIENT

DRUGS (3)
  1. RUXOLITINIB [Suspect]
     Active Substance: RUXOLITINIB
     Indication: Product used for unknown indication
     Dosage: 20 MG, BID
     Route: 065
     Dates: start: 201808, end: 202311
  2. RUXOLITINIB [Suspect]
     Active Substance: RUXOLITINIB
     Dosage: 15 MG, BID
     Route: 065
     Dates: start: 202002
  3. HEPARIN [Concomitant]
     Active Substance: HEPARIN SODIUM
     Indication: Product used for unknown indication
     Route: 065

REACTIONS (19)
  - Anaemia [Unknown]
  - Haematemesis [Unknown]
  - Melaena [Unknown]
  - Chronic gastritis [Unknown]
  - Hypertrophy [Unknown]
  - Aortic valve calcification [Unknown]
  - Systolic dysfunction [Unknown]
  - Varices oesophageal [Unknown]
  - Fatigue [Unknown]
  - Haematotoxicity [Unknown]
  - Tricuspid valve incompetence [Unknown]
  - Mitral valve incompetence [Unknown]
  - Oedema peripheral [Unknown]
  - Malaise [Unknown]
  - Aortic stenosis [Unknown]
  - Occult blood positive [Unknown]
  - Gastrointestinal haemorrhage [Unknown]
  - Pulmonary hypertension [Unknown]
  - Thrombocytopenia [Unknown]

NARRATIVE: CASE EVENT DATE: 20200201
